FAERS Safety Report 23178846 (Version 1)
Quarter: 2023Q4

REPORT INFORMATION
  Report Type: Spontaneous
  Country: CN (occurrence: CN)
  Receive Date: 20231113
  Receipt Date: 20231113
  Transmission Date: 20240109
  Serious: Yes (Other)
  Sender: FDA-Public Use
  Company Number: CN-PFIZER INC-PV202300181940

PATIENT
  Age: 55 Year
  Sex: Male
  Weight: 60 kg

DRUGS (1)
  1. ZYVOX [Suspect]
     Active Substance: LINEZOLID
     Indication: Intracranial infection
     Dosage: 0.6 G, 2X/DAY
     Dates: start: 20231025

REACTIONS (3)
  - Hepatocellular injury [Unknown]
  - Off label use [Unknown]
  - Off label use [Unknown]

NARRATIVE: CASE EVENT DATE: 20231025
